FAERS Safety Report 19319124 (Version 1)
Quarter: 2021Q2

REPORT INFORMATION
  Report Type: Spontaneous
  Country: US (occurrence: US)
  Receive Date: 20210527
  Receipt Date: 20210527
  Transmission Date: 20210717
  Serious: Yes (Death)
  Sender: FDA-Public Use
  Company Number: None

PATIENT
  Age: 15 Year
  Sex: Female

DRUGS (1)
  1. NEULASTA [Suspect]
     Active Substance: PEGFILGRASTIM
     Dosage: OTHER FREQUENCY:OTHER;?
     Route: 058
     Dates: start: 202008

REACTIONS (1)
  - Death [None]

NARRATIVE: CASE EVENT DATE: 20210527
